FAERS Safety Report 14989283 (Version 1)
Quarter: 2018Q2

REPORT INFORMATION
  Report Type: Spontaneous
  Country: GB (occurrence: GB)
  Receive Date: 20180608
  Receipt Date: 20180608
  Transmission Date: 20180711
  Serious: Yes (Death, Other)
  Sender: FDA-Public Use
  Company Number: GB-MYLANLABS-2018M1038394

PATIENT
  Age: 30 Year
  Sex: Female

DRUGS (3)
  1. SYNTOCINON [Concomitant]
     Active Substance: OXYTOCIN
     Indication: PRODUCT USED FOR UNKNOWN INDICATION
     Dosage: POSTPARTUM
     Route: 065
  2. BUPIVACAINE. [Suspect]
     Active Substance: BUPIVACAINE
     Indication: PRODUCT USED FOR UNKNOWN INDICATION
     Dosage: 150 ML OF A 500 ML BAG OF 0.1% BUPIVACAINE IN SALINE
     Route: 042
  3. SALINE                             /00075401/ [Concomitant]
     Active Substance: SODIUM CHLORIDE
     Indication: PRODUCT USED FOR UNKNOWN INDICATION
     Dosage: 150 ML OF A 500 ML BAG OF 0.1% BUPIVACAINE IN SALINE
     Route: 042

REACTIONS (4)
  - Cardiac arrest [Fatal]
  - Ventricular fibrillation [Fatal]
  - Incorrect route of drug administration [Fatal]
  - Generalised tonic-clonic seizure [Fatal]
